FAERS Safety Report 6732315-6 (Version None)
Quarter: 2010Q2

REPORT INFORMATION
  Report Type: 
  Country: None (occurrence: None)
  Receive Date: 20100519
  Receipt Date: 20100504
  Transmission Date: 20101027
  Serious: Yes (Life-Threatening, Hospitalization)
  Sender: FDA-Public Use
  Company Number: JP-TYCO HEALTHCARE/MALLINCKRODT-T201001120

PATIENT
  Age: 18 Year
  Sex: Female
  Weight: 50 kg

DRUGS (8)
  1. MORPHINE [Suspect]
     Indication: GENERAL ANAESTHESIA
     Dosage: UNK
     Route: 058
  2. MORPHINE [Suspect]
     Indication: PAIN MANAGEMENT
  3. PROPOFOL [Suspect]
     Indication: GENERAL ANAESTHESIA
     Dosage: 98 MG, UNK
  4. FENTANYL [Suspect]
     Indication: GENERAL ANAESTHESIA
     Dosage: 0.45 MG, UNK
  5. ROPIVACAINE HYDROCHLORIDE [Suspect]
     Indication: PAIN MANAGEMENT
     Dosage: UNK
     Route: 058
  6. DROPERIDOL [Suspect]
     Indication: PAIN MANAGEMENT
     Dosage: UNK
  7. NORMAL SALINE [Suspect]
     Dosage: UNK ML, UNK
     Route: 058
  8. HALOPERIDOL [Suspect]
     Indication: SEDATION
     Dosage: 5 MG, UNK
     Route: 042

REACTIONS (1)
  - CATATONIA [None]
